FAERS Safety Report 24133474 (Version 2)
Quarter: 2024Q3

REPORT INFORMATION
  Report Type: Spontaneous
  Country: CA (occurrence: CA)
  Receive Date: 20240724
  Receipt Date: 20240916
  Transmission Date: 20241016
  Serious: Yes (Hospitalization, Other)
  Sender: PFIZER
  Company Number: CA-PFIZER INC-202400221676

PATIENT
  Age: 75 Year
  Sex: Male

DRUGS (2)
  1. ABRILADA [Suspect]
     Active Substance: ADALIMUMAB-AFZB
     Indication: Ankylosing spondylitis
     Dosage: 40 MG, EVERY 2 WEEK
     Route: 058
     Dates: start: 20220606
  2. CELECOXIB [Concomitant]
     Active Substance: CELECOXIB
     Dosage: 1 DF, UNK DOSE AND FREQ ONGOING
     Route: 065
     Dates: start: 2019

REACTIONS (2)
  - Spinal fracture [Unknown]
  - Fall [Unknown]

NARRATIVE: CASE EVENT DATE: 20240701
